FAERS Safety Report 9840328 (Version 1)
Quarter: 2013Q4

REPORT INFORMATION
  Report Type: Spontaneous
  Country: US (occurrence: None)
  Receive Date: 20131211
  Receipt Date: 20131211
  Transmission Date: 20140711
  Serious: Yes (Other)
  Sender: FDA-Public Use
  Company Number: ALL1-2012-05953

PATIENT
  Age: 26 Year
  Sex: Female
  Weight: 72.7 kg

DRUGS (7)
  1. FIRAZYR [Suspect]
     Indication: HEREDITARY ANGIOEDEMA
     Dosage: 30 MG, AS REQ^D, SUBCUTANEOUS?
     Dates: start: 20120223
  2. DIPHENHYDRAMINE (DIPHENHYDRAMINE) [Concomitant]
  3. SODIUM CHLORIDE (SODIUM CLORIDE) [Concomitant]
  4. BERINET (COMPLEMENT C1 ESTERASE INHIBITOR) [Concomitant]
  5. DANAZOL (DANAZOL) [Concomitant]
  6. ADDERALL (AMFETAMINE ASPARTATE, AMFETAMINE SULFATE, DEXAMFETAMINE SACCHARATE, DEXAMFETAMINE SULFATE) [Concomitant]
  7. LOW-OGESTREL-28 (ETHINYLESTRADIOL, NORGESTREL) [Concomitant]

REACTIONS (1)
  - Confusional state [None]
